FAERS Safety Report 6540277-X (Version None)
Quarter: 2010Q1

REPORT INFORMATION
  Report Type: 
  Country: None (occurrence: None)
  Receive Date: 20100115
  Receipt Date: 20100106
  Transmission Date: 20100710
  Serious: Yes (Hospitalization, Other)
  Sender: FDA-Public Use
  Company Number: US-ABBOTT-10P-163-0617257-00

PATIENT
  Sex: Female
  Weight: 45.4 kg

DRUGS (7)
  1. HUMIRA [Suspect]
     Indication: CROHN'S DISEASE
     Route: 058
     Dates: start: 20091203, end: 20091203
  2. HUMIRA [Suspect]
     Dates: start: 20091201, end: 20091201
  3. HUMIRA [Suspect]
     Dates: start: 20091201
  4. COMPAZINE [Concomitant]
     Indication: CROHN'S DISEASE
  5. KLONOPIN [Concomitant]
     Indication: CONVULSION
  6. KLONOPIN [Concomitant]
     Indication: ANXIETY
  7. IMURAN [Concomitant]
     Indication: CROHN'S DISEASE

REACTIONS (8)
  - ABDOMINAL PAIN [None]
  - BLADDER PAIN [None]
  - DRUG INEFFECTIVE [None]
  - FISTULA DISCHARGE [None]
  - INTESTINAL OBSTRUCTION [None]
  - RED BLOOD CELLS URINE [None]
  - URINARY SEDIMENT PRESENT [None]
  - VAGINAL DISCHARGE [None]
